FAERS Safety Report 7714670-3 (Version None)
Quarter: 2011Q3

REPORT INFORMATION
  Report Type: 
  Country: None (occurrence: None)
  Receive Date: 20110822
  Receipt Date: 20110804
  Transmission Date: 20111222
  Serious: Yes (Death, Other)
  Sender: FDA-Public Use
  Company Number: 2011MA011484

PATIENT
  Age: 34 Year

DRUGS (5)
  1. FEVERALL [Suspect]
  2. METHADONE HCL [Suspect]
     Dosage: 0.5 MG/L
  3. TRAMADOL HCL [Suspect]
  4. CHLORPROMAZINE [Suspect]
  5. QUETIAPINE FUMARATE [Suspect]

REACTIONS (9)
  - TOXICITY TO VARIOUS AGENTS [None]
  - PNEUMONIA [None]
  - ASPIRATION [None]
  - SNORING [None]
  - PULMONARY CONGESTION [None]
  - PULMONARY OEDEMA [None]
  - CORONARY ARTERY OCCLUSION [None]
  - RESPIRATORY ARREST [None]
  - OVERDOSE [None]
